FAERS Safety Report 4289647-3 (Version None)
Quarter: 2004Q1

REPORT INFORMATION
  Report Type: 
  Country: None (occurrence: None)
  Receive Date: 20040126
  Receipt Date: 20031001
  Transmission Date: 20041129
  Serious: No
  Sender: FDA-Public Use
  Company Number: USA031048747

PATIENT
  Age: 47 Year
  Sex: Female
  Weight: 59 kg

DRUGS (3)
  1. FORTEO [Suspect]
     Indication: OSTEOPOROSIS
     Dosage: 20 UG/AT BEDTIME
     Dates: start: 20030901
  2. ACTONEL [Concomitant]
  3. MIACALCIN [Concomitant]

REACTIONS (7)
  - BONE PAIN [None]
  - DIZZINESS [None]
  - FATIGUE [None]
  - FEELING ABNORMAL [None]
  - HYPERHIDROSIS [None]
  - PRURITUS [None]
  - URTICARIA [None]
